FAERS Safety Report 18417671 (Version 1)
Quarter: 2020Q4

REPORT INFORMATION
  Report Type: Spontaneous
  Country: US (occurrence: US)
  Receive Date: 20201022
  Receipt Date: 20201022
  Transmission Date: 20210114
  Serious: No
  Sender: FDA-Public Use
  Company Number: US-SEATTLE GENETICS-2020SGN03346

PATIENT
  Sex: Female

DRUGS (3)
  1. TUKYSA [Suspect]
     Active Substance: TUCATINIB
     Indication: BREAST CANCER FEMALE
     Dosage: UNK UNK, BID
  2. CAPECITABINE. [Concomitant]
     Active Substance: CAPECITABINE
     Indication: BREAST CANCER FEMALE
  3. HERCEPTIN [Concomitant]
     Active Substance: TRASTUZUMAB
     Indication: BREAST CANCER FEMALE

REACTIONS (16)
  - Fatigue [Unknown]
  - Skin exfoliation [Recovering/Resolving]
  - Abdominal pain [Unknown]
  - Diarrhoea [Recovering/Resolving]
  - Dyspepsia [Unknown]
  - Renal disorder [Unknown]
  - Adverse drug reaction [Unknown]
  - Urethral stent insertion [Unknown]
  - Disease progression [Unknown]
  - Nephrostomy [Unknown]
  - Sensitive skin [Unknown]
  - Liver function test increased [Unknown]
  - Erythema [Recovering/Resolving]
  - Blood creatinine increased [Unknown]
  - Abdominal discomfort [Unknown]
  - Product dose omission issue [Unknown]
